FAERS Safety Report 17409303 (Version 4)
Quarter: 2020Q1

REPORT INFORMATION
  Report Type: Spontaneous
  Country: US (occurrence: US)
  Receive Date: 20200212
  Receipt Date: 20200311
  Transmission Date: 20200409
  Serious: Yes (Other)
  Sender: FDA-Public Use
  Company Number: US-PFIZER INC-2020061570

PATIENT
  Age: 67 Year
  Sex: Female
  Weight: 46.27 kg

DRUGS (8)
  1. EPIPEN [Concomitant]
     Active Substance: EPINEPHRINE
     Indication: FOOD ALLERGY
     Dosage: UNK
  2. SUCRALFATE. [Concomitant]
     Active Substance: SUCRALFATE
     Indication: GASTRITIS
     Dosage: 1 MG, 3X/DAY (TWENTY MINUTES BEFORE MEALS)
     Route: 048
     Dates: start: 2018
  3. BENADRYL [Concomitant]
     Active Substance: DIPHENHYDRAMINE HYDROCHLORIDE
     Indication: SLEEP DISORDER
     Dosage: UNK, 1X/DAY (AT NIGHT)
  4. SYNTHROID [Concomitant]
     Active Substance: LEVOTHYROXINE SODIUM
     Indication: HYPOTHYROIDISM
     Dosage: 75 MG, 1X/DAY (ONCE PER DAY, SIX DAYS PER WEEK )
     Dates: start: 1993
  5. OMEPRAZOLE. [Concomitant]
     Active Substance: OMEPRAZOLE
     Dosage: 40 MG, 1X/DAY
  6. ZYRTEC [Concomitant]
     Active Substance: CETIRIZINE HYDROCHLORIDE
     Indication: MILK ALLERGY
     Dosage: UNK, 1X/DAY (I ALWAYS TOOK ZYRTEC IN THE MORNING)
  7. OMEPRAZOLE. [Concomitant]
     Active Substance: OMEPRAZOLE
     Dosage: 20 MG, 2X/DAY
     Route: 048
     Dates: start: 2018
  8. ALPRAZOLAM. [Suspect]
     Active Substance: ALPRAZOLAM
     Indication: ANXIETY
     Dosage: 0.1 MG, 2X/DAY
     Route: 048

REACTIONS (7)
  - Drug hypersensitivity [Unknown]
  - Corona virus infection [Unknown]
  - Anxiety [Not Recovered/Not Resolved]
  - Swelling [Unknown]
  - Nervousness [Unknown]
  - Asthma [Unknown]
  - Erythema [Not Recovered/Not Resolved]

NARRATIVE: CASE EVENT DATE: 20200207
